FAERS Safety Report 7898587-X (Version None)
Quarter: 2011Q4

REPORT INFORMATION
  Report Type: 
  Country: None (occurrence: None)
  Receive Date: 20111107
  Receipt Date: 20111031
  Transmission Date: 20120403
  Serious: Yes (Other)
  Sender: FDA-Public Use
  Company Number: US-PURDUE-USA-2011-0077119

PATIENT
  Sex: Male

DRUGS (2)
  1. OXYCONTIN [Suspect]
     Indication: PAIN
     Dosage: 160 MG, Q12H
     Route: 048
  2. BREAKTHROUGH PAIN MEDICATION [Concomitant]
     Indication: BREAKTHROUGH PAIN

REACTIONS (4)
  - STRESS [None]
  - ANXIETY [None]
  - MUSCLE SPASMS [None]
  - CARDIAC FLUTTER [None]
